FAERS Safety Report 25740113 (Version 1)
Quarter: 2025Q3

REPORT INFORMATION
  Report Type: Spontaneous
  Country: US (occurrence: US)
  Receive Date: 20250829
  Receipt Date: 20250829
  Transmission Date: 20251020
  Serious: No
  Sender: ROCHE
  Company Number: US-ROCHE-10000372421

PATIENT
  Sex: Female

DRUGS (2)
  1. ACTEMRA [Suspect]
     Active Substance: TOCILIZUMAB
     Indication: Rheumatoid arthritis
     Dosage: STRENGTH: 400 MG/ 20 ML
     Route: 042
     Dates: start: 202501
  2. ACTEMRA [Suspect]
     Active Substance: TOCILIZUMAB
     Dosage: STRENGTH: 80 MG/4ML?STRENGTH: 8 MG/KG (720 MG)
     Route: 042
     Dates: start: 202501

REACTIONS (2)
  - Drug ineffective [Unknown]
  - No adverse event [Unknown]
